FAERS Safety Report 8939933 (Version 1)
Quarter: 2012Q4

REPORT INFORMATION
  Report Type: 
  Country: US (occurrence: US)
  Receive Date: 20121203
  Receipt Date: 20121203
  Transmission Date: 20130627
  Serious: Yes (Other)
  Sender: FDA-Public Use
  Company Number: US-SANOFI-AVENTIS-2012SA085270

PATIENT
  Age: 49 Year
  Sex: Female

DRUGS (9)
  1. ARAVA [Suspect]
     Route: 065
     Dates: start: 2005, end: 2005
  2. HUMIRA [Suspect]
     Indication: RHEUMATOID ARTHRITIS
     Route: 065
     Dates: start: 2003, end: 2005
  3. HUMIRA [Suspect]
     Indication: RHEUMATOID ARTHRITIS
     Route: 065
     Dates: start: 2005, end: 2007
  4. HUMIRA [Suspect]
     Indication: RHEUMATOID ARTHRITIS
     Route: 065
     Dates: start: 2008, end: 20121013
  5. METHOTREXATE [Concomitant]
     Dosage: Dosage: 2.5 mg x 4 tablets weekly
     Dates: end: 2005
  6. PROCARDIA [Concomitant]
     Indication: RAYNAUD^S SYNDROME
  7. KLONOPIN [Concomitant]
  8. OMEPRAZOLE [Concomitant]
  9. EFFEXOR [Concomitant]

REACTIONS (6)
  - Breast cyst [Unknown]
  - Cellulitis [Unknown]
  - Staphylococcal infection [Unknown]
  - Unevaluable event [Unknown]
  - Scar [Unknown]
  - Blood cholesterol increased [Unknown]
